FAERS Safety Report 7000515-6 (Version None)
Quarter: 2010Q3

REPORT INFORMATION
  Report Type: 
  Country: None (occurrence: None)
  Receive Date: 20100920
  Receipt Date: 20080707
  Transmission Date: 20110219
  Serious: Yes (Hospitalization)
  Sender: FDA-Public Use
  Company Number: US-ASTRAZENECA-2008UW01211

PATIENT
  Age: 14347 Day
  Sex: Female
  Weight: 147.4 kg

DRUGS (10)
  1. SEROQUEL [Suspect]
     Indication: SCHIZOAFFECTIVE DISORDER
     Dosage: 300 TO 600 MG
     Route: 048
     Dates: start: 20020120
  2. SEROQUEL [Suspect]
     Dosage: 300 MG - 900 MG
     Route: 048
     Dates: start: 20021001
  3. RISPERDAL [Concomitant]
     Dates: start: 20020814
  4. HYDROCODONE [Concomitant]
     Dosage: 7.5\650
     Dates: start: 20021112
  5. ALPRAZOLAM [Concomitant]
     Dates: start: 20021212
  6. RESTORIL [Concomitant]
     Indication: SLEEP DISORDER
     Route: 048
     Dates: start: 20040105
  7. NEXIUM [Concomitant]
     Route: 048
     Dates: start: 20050601
  8. DARVOCET-N 100 [Concomitant]
     Indication: PAIN
     Dosage: 100 EVERY FOUR HOURS PRN
     Dates: start: 20030611
  9. LORTAB [Concomitant]
     Indication: PAIN
     Dates: start: 20030611
  10. ACTOS [Concomitant]
     Dates: start: 20030611

REACTIONS (2)
  - DIABETES MELLITUS [None]
  - DIABETES MELLITUS INADEQUATE CONTROL [None]
